FAERS Safety Report 9424371 (Version 2)
Quarter: 2013Q3

REPORT INFORMATION
  Report Type: Report from Study
  Country: JP (occurrence: JP)
  Receive Date: 20130729
  Receipt Date: 20130903
  Transmission Date: 20140515
  Serious: Yes (Life-Threatening, Hospitalization)
  Sender: FDA-Public Use
  Company Number: JP-GENZYME-THYM-1003929

PATIENT
  Age: 54 Year
  Sex: Male
  Weight: 85 kg

DRUGS (14)
  1. THYMOGLOBULIN [Suspect]
     Indication: APLASTIC ANAEMIA
     Dosage: 250 MG, QD
     Route: 065
     Dates: start: 20120702, end: 20120706
  2. SOL-MELCORT [Concomitant]
     Indication: PROPHYLAXIS
     Dosage: UNK
     Route: 065
     Dates: start: 20120702, end: 20120706
  3. NEOMALLERMIN TR [Concomitant]
     Indication: PROPHYLAXIS
     Dosage: UNK
     Route: 065
     Dates: start: 20120702, end: 20120706
  4. BAKTAR [Concomitant]
     Indication: ANTIFUNGAL PROPHYLAXIS
     Dosage: UNK
     Route: 065
     Dates: start: 20120702
  5. OMEPRAL [Concomitant]
     Indication: PROPHYLAXIS AGAINST GASTROINTESTINAL ULCER
     Dosage: UNK
     Route: 065
     Dates: start: 20120702, end: 20130111
  6. ITRIZOLE [Concomitant]
     Indication: ANTIFUNGAL PROPHYLAXIS
     Dosage: UNK
     Route: 065
     Dates: start: 20120702, end: 20121011
  7. NEORAL [Concomitant]
     Indication: APLASTIC ANAEMIA
     Dosage: UNK
     Route: 065
     Dates: start: 20120702
  8. EXJADE [Concomitant]
     Indication: PROPHYLAXIS
     Dosage: UNK
     Route: 065
     Dates: start: 20120827, end: 20121011
  9. CRAVIT [Concomitant]
     Indication: ANTIBIOTIC PROPHYLAXIS
     Dosage: UNK
     Route: 065
     Dates: start: 20120702, end: 20120725
  10. PRIMOBOLAN [Concomitant]
     Indication: APLASTIC ANAEMIA
     Dosage: UNK
     Route: 065
     Dates: start: 20120911
  11. PREDNISOLONE [Concomitant]
     Indication: PROPHYLAXIS
     Dosage: UNK
     Route: 065
     Dates: start: 20120707, end: 20120814
  12. MUCOSTA [Concomitant]
     Indication: PROPHYLAXIS AGAINST GASTROINTESTINAL ULCER
     Dosage: UNK
     Route: 065
     Dates: start: 20120822, end: 20120827
  13. LOXONIN [Concomitant]
     Indication: PAIN
     Dosage: UNK
     Route: 065
     Dates: start: 20120727, end: 20120827
  14. NEUTROGIN [Concomitant]
     Indication: APLASTIC ANAEMIA
     Dosage: UNK
     Route: 065
     Dates: start: 20120704, end: 20120924

REACTIONS (8)
  - Febrile neutropenia [Not Recovered/Not Resolved]
  - Escherichia sepsis [Recovered/Resolved]
  - Herpes zoster [Recovered/Resolved]
  - Oral candidiasis [Recovered/Resolved]
  - Herpes simplex [Recovered/Resolved]
  - Hypoalbuminaemia [Recovered/Resolved]
  - Liver disorder [Recovered/Resolved]
  - Insomnia [Recovered/Resolved]
